FAERS Safety Report 20334902 (Version 1)
Quarter: 2022Q1

REPORT INFORMATION
  Report Type: Spontaneous
  Country: JP (occurrence: JP)
  Receive Date: 20220114
  Receipt Date: 20220114
  Transmission Date: 20220424
  Serious: Yes (Other)
  Sender: FDA-Public Use
  Company Number: JP-SAKK-2022SA009694AA

PATIENT
  Age: 66 Year
  Sex: Female

DRUGS (3)
  1. CLOFARABINE [Suspect]
     Active Substance: CLOFARABINE
     Indication: Acute lymphocytic leukaemia recurrent
     Route: 041
  2. CLOFARABINE [Suspect]
     Active Substance: CLOFARABINE
     Dosage: UNK
     Route: 041
  3. PONATINIB [Concomitant]
     Active Substance: PONATINIB
     Indication: Acute lymphocytic leukaemia recurrent
     Dosage: UNK UNK, Q3W
     Route: 048

REACTIONS (4)
  - Diffuse large B-cell lymphoma [Unknown]
  - Pyrexia [Unknown]
  - Lymphadenopathy [Recovering/Resolving]
  - Pancytopenia [Unknown]
